FAERS Safety Report 7391585-4 (Version None)
Quarter: 2011Q2

REPORT INFORMATION
  Report Type: 
  Country: None (occurrence: None)
  Receive Date: 20110404
  Receipt Date: 20110323
  Transmission Date: 20111010
  Serious: Yes (Other)
  Sender: FDA-Public Use
  Company Number: PHHY2011FR06886

PATIENT
  Age: 72 Year
  Sex: Female
  Weight: 68 kg

DRUGS (2)
  1. RASILEZ [Suspect]
     Indication: HYPERTENSION
     Dosage: 300 MG, UNK
  2. RASILEZ [Suspect]
     Dosage: 150 MG, UNK
     Dates: start: 20110124

REACTIONS (4)
  - PRURITUS [None]
  - FACE OEDEMA [None]
  - ANAPHYLACTIC REACTION [None]
  - ANGIOEDEMA [None]
